FAERS Safety Report 9368755 (Version 1)
Quarter: 2013Q2

REPORT INFORMATION
  Report Type: Spontaneous
  Country: US (occurrence: US)
  Receive Date: 20130626
  Receipt Date: 20130626
  Transmission Date: 20140414
  Serious: Yes (Hospitalization)
  Sender: FDA-Public Use
  Company Number: PHHY2013US061674

PATIENT
  Age: 15 Year
  Sex: Female

DRUGS (2)
  1. METFORMIN [Suspect]
     Dosage: 75 G, UNK
     Route: 048
  2. QUETIAPINE [Suspect]
     Indication: MAJOR DEPRESSION
     Dosage: 3 G, UNK
     Route: 048

REACTIONS (8)
  - Intentional overdose [Recovered/Resolved]
  - Somnolence [Recovered/Resolved]
  - Lactic acidosis [Recovered/Resolved]
  - Hypotension [Recovered/Resolved]
  - Nausea [Unknown]
  - Vomiting [Unknown]
  - Drug level increased [Recovered/Resolved]
  - Hypoglycaemia [Recovered/Resolved]
